FAERS Safety Report 8979140 (Version 3)
Quarter: 2013Q1

REPORT INFORMATION
  Report Type: Spontaneous
  Country: US (occurrence: US)
  Receive Date: 20121221
  Receipt Date: 20130131
  Transmission Date: 20140127
  Serious: Yes (Death)
  Sender: FDA-Public Use
  Company Number: US-GLAXOSMITHKLINE-A1006054A

PATIENT
  Age: 75 Year
  Sex: Male

DRUGS (4)
  1. PROMACTA [Suspect]
     Indication: APLASTIC ANAEMIA
     Route: 048
     Dates: start: 20120813
  2. ANTIBIOTIC [Concomitant]
  3. ANTIFUNGAL [Concomitant]
  4. FENTANYL [Concomitant]

REACTIONS (3)
  - Aplastic anaemia [Fatal]
  - Sepsis [Fatal]
  - Platelet count decreased [Unknown]
